FAERS Safety Report 7398827-X (Version None)
Quarter: 2011Q2

REPORT INFORMATION
  Report Type: 
  Country: None (occurrence: None)
  Receive Date: 20110404
  Receipt Date: 20110404
  Transmission Date: 20111010
  Serious: Yes (Other)
  Sender: FDA-Public Use
  Company Number: None

PATIENT
  Age: 52 Year
  Sex: Female
  Weight: 108.8633 kg

DRUGS (2)
  1. CELEXA [Suspect]
     Indication: DEPRESSION
     Dosage: 40 MG DAILY PO
     Route: 048
     Dates: start: 20000101, end: 20110201
  2. QUETIAPINE FUMARATE [Suspect]
     Indication: THINKING ABNORMAL
     Dosage: 300 MG DAILY PO
     Route: 048
     Dates: start: 20000101, end: 20110403

REACTIONS (9)
  - LOSS OF EMPLOYMENT [None]
  - WEIGHT INCREASED [None]
  - BLOOD CHOLESTEROL INCREASED [None]
  - BLOOD TRIGLYCERIDES INCREASED [None]
  - FOOD CRAVING [None]
  - DEPRESSION [None]
  - TARDIVE DYSKINESIA [None]
  - TIC [None]
  - INSOMNIA [None]
